FAERS Safety Report 8386085-9 (Version None)
Quarter: 2012Q2

REPORT INFORMATION
  Report Type: 
  Country: None (occurrence: None)
  Receive Date: 20120525
  Receipt Date: 20120514
  Transmission Date: 20120825
  Serious: Yes (Hospitalization)
  Sender: FDA-Public Use
  Company Number: US-UCBSA-056162

PATIENT
  Age: 41 Year
  Sex: Female
  Weight: 57.2 kg

DRUGS (19)
  1. CIPROFLOXACIN HCL [Concomitant]
     Indication: CROHN'S DISEASE
     Dates: start: 20101105
  2. FISH OIL [Concomitant]
     Dosage: 500 MG CAPSULE
  3. METROGEL [Concomitant]
     Dosage: 1 % GEL:
     Route: 061
  4. ACETAMINOPHEN [Concomitant]
     Dosage: DAILY DOSE: 325 MG
  5. ENTOCORT EC [Concomitant]
     Indication: CROHN'S DISEASE
  6. COLESTID [Concomitant]
     Route: 048
  7. ENTOCORT EC [Concomitant]
  8. PROTOPIC [Concomitant]
     Dosage: 1% OINTMENT, 1 APPLICATION BID
     Route: 061
  9. TEMOVATE [Concomitant]
     Dosage: 0.05% OINTMENT : 1 APPLICATION AS DIRECTED
     Route: 061
  10. CITRUCEL SUGAR FREE [Concomitant]
     Indication: DIARRHOEA
     Dosage: 1 HEAPING TABLE SPOON IN ONLY 4 OZ. WATER, MAY ICREAST TO TWICE DAILY
     Route: 048
  11. ZINC OXIDE [Concomitant]
     Indication: DRY SKIN
     Route: 061
  12. CORTIFOAM [Concomitant]
     Indication: CROHN'S DISEASE
     Dates: start: 20101105
  13. ATIVAN [Concomitant]
     Indication: ANXIETY
     Dosage: 2 MG AS DIRECTED
     Route: 048
  14. CIMZIA [Suspect]
     Route: 058
     Dates: start: 20100413, end: 20110607
  15. LOMOTIL [Concomitant]
     Indication: DIARRHOEA
     Dosage: 2.5 - .025 MG PER TABLET: 1-2 TAB ORAL 4 TIMES AS NEEDED
     Route: 048
  16. EMLA [Concomitant]
     Route: 061
  17. ACETAMINOPHEN [Concomitant]
     Indication: CROHN'S DISEASE
  18. VALIUM [Concomitant]
     Dosage: 2.5 MG TAB 45 MIN BEFORE PROCEDURE
     Route: 048
  19. ATIVAN [Concomitant]
     Dosage: 0.5 MG TABLET , EVERY 6 HOURS PRN
     Route: 048
     Dates: start: 20110907

REACTIONS (1)
  - THYROID CANCER [None]
